FAERS Safety Report 20212581 (Version 2)
Quarter: 2022Q1

REPORT INFORMATION
  Report Type: Other
  Country: SK (occurrence: SK)
  Receive Date: 20211221
  Receipt Date: 20220104
  Transmission Date: 20220423
  Serious: Yes (Life-Threatening)
  Sender: FDA-Public Use
  Company Number: SK-CELLTRION HEALTHCARE HUNGARY KFT-2021SK016532

PATIENT

DRUGS (14)
  1. CISPLATIN [Suspect]
     Active Substance: CISPLATIN
     Indication: Immunochemotherapy
     Dosage: OF R-DHAP PROTOCOL
     Route: 065
  2. CYTARABINE [Suspect]
     Active Substance: CYTARABINE
     Indication: Immunochemotherapy
     Dosage: PART OF R-ENAP PROTOCOL
     Route: 065
  3. CYTARABINE [Suspect]
     Active Substance: CYTARABINE
     Dosage: PART OF R-DHAP PROTOCOL
     Route: 065
  4. VINCRISTINE [Suspect]
     Active Substance: VINCRISTINE
     Indication: Immunochemotherapy
     Dosage: PART OF R-CHOP PROTOCOL
     Route: 065
     Dates: start: 201909
  5. RITUXIMAB [Suspect]
     Active Substance: RITUXIMAB
     Indication: Non-Hodgkin^s lymphoma
     Dosage: PART OF R-CHOP PROTOCOL
     Route: 041
     Dates: start: 201909
  6. RITUXIMAB [Suspect]
     Active Substance: RITUXIMAB
     Dosage: PART OF R-DHAP PROTOCOL
     Route: 041
  7. RITUXIMAB [Suspect]
     Active Substance: RITUXIMAB
     Dosage: PART OF R-ENAP PROTOCOL
     Route: 041
  8. DOXORUBICIN [Suspect]
     Active Substance: DOXORUBICIN
     Indication: Immunochemotherapy
     Dosage: PART OF R-CHOP PROTOCOL
     Route: 065
     Dates: start: 201909
  9. GEMCITABINE [Suspect]
     Active Substance: GEMCITABINE
     Indication: Immunochemotherapy
     Dosage: THE FOURTH-LINE CHEMOTHERAPY (GD PROTOCOL)
     Route: 065
  10. PREDNISONE [Suspect]
     Active Substance: PREDNISONE
     Indication: Immunochemotherapy
     Dosage: PART OF R-ENAP PROTOCOL
     Route: 065
  11. CYCLOPHOSPHAMIDE [Suspect]
     Active Substance: CYCLOPHOSPHAMIDE
     Indication: Immunochemotherapy
     Dosage: PART OF R-CHOP PROTOCOL
     Route: 065
     Dates: start: 201909
  12. MITOXANTRONE [Suspect]
     Active Substance: MITOXANTRONE HYDROCHLORIDE
     Indication: Immunochemotherapy
     Dosage: PART OF R-ENAP PROTOCOL
     Route: 065
  13. DEXAMETHASONE [Suspect]
     Active Substance: DEXAMETHASONE
     Indication: Immunochemotherapy
     Dosage: PART OF R-DHAP PROTOCOL
     Route: 065
  14. ETOPOSIDE [Suspect]
     Active Substance: ETOPOSIDE
     Indication: Immunochemotherapy
     Dosage: PART OF R-ENAP PROTOCOL
     Route: 065

REACTIONS (6)
  - Neurotoxicity [Unknown]
  - Neoplasm [Unknown]
  - Non-Hodgkin^s lymphoma refractory [Unknown]
  - Toxicity to various agents [Unknown]
  - Drug ineffective [Unknown]
  - Disease progression [Unknown]

NARRATIVE: CASE EVENT DATE: 20200101
